FAERS Safety Report 25954871 (Version 2)
Quarter: 2025Q4

REPORT INFORMATION
  Report Type: Spontaneous
  Country: US (occurrence: US)
  Receive Date: 20251024
  Receipt Date: 20251104
  Transmission Date: 20260117
  Serious: Yes (Other)
  Sender: AUROBINDO
  Company Number: US-MLMSERVICE-20251006-PI667977-00295-2

PATIENT
  Age: 17 Year
  Sex: Female

DRUGS (13)
  1. SERTRALINE [Suspect]
     Active Substance: SERTRALINE HYDROCHLORIDE
     Indication: Selective mutism
     Dosage: 25 MILLIGRAM, TWO TIMES A DAY
     Route: 065
     Dates: start: 2023, end: 2023
  2. SERTRALINE [Suspect]
     Active Substance: SERTRALINE HYDROCHLORIDE
     Indication: Anxiety
  3. FLUOXETINE [Suspect]
     Active Substance: FLUOXETINE HYDROCHLORIDE
     Indication: Selective mutism
     Dosage: 10 MILLIGRAM
     Route: 065
     Dates: start: 2023, end: 2023
  4. FLUOXETINE [Suspect]
     Active Substance: FLUOXETINE HYDROCHLORIDE
     Indication: Anxiety
     Dosage: 20 MILLIGRAM
     Route: 065
     Dates: start: 2023, end: 2023
  5. DIVALPROEX SODIUM [Suspect]
     Active Substance: DIVALPROEX SODIUM
     Indication: Catatonia
     Dosage: 250 MILLIGRAM, ONCE A DAY
     Route: 065
     Dates: start: 2024, end: 2024
  6. LORAZEPAM [Suspect]
     Active Substance: LORAZEPAM
     Indication: Catatonia
     Dosage: 5 MILLIGRAM, FOUR TIMES/DAY
     Route: 065
     Dates: start: 202403, end: 2024
  7. LORAZEPAM [Suspect]
     Active Substance: LORAZEPAM
     Dosage: 2 MILLIGRAM, FOUR TIMES/DAY
     Route: 065
     Dates: start: 2024, end: 2024
  8. LORAZEPAM [Suspect]
     Active Substance: LORAZEPAM
     Dosage: 2 MILLIGRAM, FOUR TIMES/DAY
     Route: 042
     Dates: start: 202410, end: 2024
  9. LORAZEPAM [Suspect]
     Active Substance: LORAZEPAM
     Dosage: 10 MILLIGRAM, FOUR TIMES/DAY (TITRATED TO 40MG DAILY (10MG Q6H))
     Route: 042
     Dates: start: 2024, end: 2024
  10. LORAZEPAM [Suspect]
     Active Substance: LORAZEPAM
     Dosage: 6 MILLIGRAM, FOUR TIMES/DAY (LATER DOWN TITRATED TO 24MG (6MG Q6H).
     Route: 042
     Dates: start: 2025
  11. RISPERIDONE [Concomitant]
     Active Substance: RISPERIDONE
     Indication: Catatonia
     Dosage: 2 MILLIGRAM, ONCE A DAY
     Route: 065
     Dates: start: 2024, end: 2025
  12. RISPERIDONE [Concomitant]
     Active Substance: RISPERIDONE
     Dosage: 1.5 MILLIGRAM, ONCE A DAY
     Route: 065
     Dates: start: 2024, end: 2024
  13. RISPERIDONE [Concomitant]
     Active Substance: RISPERIDONE
     Dosage: 1 MILLIGRAM, ONCE A DAY
     Route: 065
     Dates: start: 2024, end: 2024

REACTIONS (4)
  - Sedation [Not Recovered/Not Resolved]
  - Dizziness [Recovered/Resolved]
  - Tremor [Recovered/Resolved]
  - Rash [Recovered/Resolved]

NARRATIVE: CASE EVENT DATE: 20230101
